FAERS Safety Report 11179047 (Version 4)
Quarter: 2015Q3

REPORT INFORMATION
  Report Type: Spontaneous
  Country: IT (occurrence: IT)
  Receive Date: 20150610
  Receipt Date: 20150730
  Transmission Date: 20151125
  Serious: Yes (Hospitalization)
  Sender: FDA-Public Use
  Company Number: PHHY2015IT068836

PATIENT
  Age: 29 Year
  Sex: Female

DRUGS (5)
  1. TEGRETOL [Interacting]
     Active Substance: CARBAMAZEPINE
     Dosage: OVERDOSE
     Route: 048
     Dates: start: 20150529, end: 20150531
  2. CLARITHROMYCIN. [Interacting]
     Active Substance: CLARITHROMYCIN
     Indication: COUGH
     Dosage: UNK
     Route: 048
     Dates: start: 20150527, end: 20150531
  3. GARDENALE [Concomitant]
     Active Substance: PHENOBARBITAL
     Indication: PRODUCT USED FOR UNKNOWN INDICATION
     Dosage: 100 MG, UNK
     Route: 048
  4. SABRIL [Concomitant]
     Active Substance: VIGABATRIN
     Indication: PRODUCT USED FOR UNKNOWN INDICATION
     Dosage: 500 MG, UNK
     Route: 048
  5. TEGRETOL [Suspect]
     Active Substance: CARBAMAZEPINE
     Indication: EPILEPSY
     Dosage: 1 G, QD
     Route: 048
     Dates: start: 20150101

REACTIONS (6)
  - Vomiting [Recovering/Resolving]
  - Nausea [Recovering/Resolving]
  - Overdose [Recovering/Resolving]
  - Anticonvulsant drug level increased [Unknown]
  - Sopor [Recovering/Resolving]
  - Drug interaction [Unknown]

NARRATIVE: CASE EVENT DATE: 20150529
